FAERS Safety Report 17413856 (Version 1)
Quarter: 2020Q1

REPORT INFORMATION
  Report Type: Spontaneous
  Country: SE (occurrence: SE)
  Receive Date: 20200213
  Receipt Date: 20200213
  Transmission Date: 20200409
  Serious: Yes (Hospitalization)
  Sender: FDA-Public Use
  Company Number: SE-ASTRAZENECA-2019SF81187

PATIENT
  Age: 76 Year
  Sex: Male

DRUGS (13)
  1. FORXIGA [Suspect]
     Active Substance: DAPAGLIFLOZIN
     Indication: TYPE 2 DIABETES MELLITUS
     Route: 048
     Dates: start: 20191028, end: 20191130
  2. DASSELTA [Concomitant]
     Active Substance: DESLORATADINE
  3. ALFUSOCIN [Concomitant]
  4. FINASTERID [Concomitant]
     Active Substance: FINASTERIDE
  5. BISOPROLOL [Concomitant]
     Active Substance: BISOPROLOL
  6. HUMALOG [Concomitant]
     Active Substance: INSULIN LISPRO
  7. CANDESARTAN. [Concomitant]
     Active Substance: CANDESARTAN
  8. LERCANIDIPINE [Concomitant]
     Active Substance: LERCANIDIPINE
  9. CLOPIDOGREL [Concomitant]
     Active Substance: CLOPIDOGREL BISULFATE
  10. HUMULIN NOS [Concomitant]
     Active Substance: INSULIN HUMAN
  11. ROSUVASTATIN. [Concomitant]
     Active Substance: ROSUVASTATIN
  12. VESICARE [Concomitant]
     Active Substance: SOLIFENACIN SUCCINATE
  13. METFORMIN [Concomitant]
     Active Substance: METFORMIN HYDROCHLORIDE

REACTIONS (1)
  - Euglycaemic diabetic ketoacidosis [Not Recovered/Not Resolved]

NARRATIVE: CASE EVENT DATE: 20191130
